FAERS Safety Report 16411091 (Version 2)
Quarter: 2019Q2

REPORT INFORMATION
  Report Type: Report from Study
  Country: US (occurrence: US)
  Receive Date: 20190610
  Receipt Date: 20190627
  Transmission Date: 20190711
  Serious: Yes (Hospitalization)
  Sender: FDA-Public Use
  Company Number: US-GILEAD-2019-0412420

PATIENT
  Age: 72 Year
  Sex: Female

DRUGS (2)
  1. OFEV [Concomitant]
     Active Substance: NINTEDANIB
  2. AMBRISENTAN [Suspect]
     Active Substance: AMBRISENTAN
     Indication: PULMONARY HYPERTENSION
     Dosage: 5 MG, QD
     Route: 065
     Dates: start: 20180515

REACTIONS (3)
  - Chest pain [Not Recovered/Not Resolved]
  - Dysphonia [Unknown]
  - Lower respiratory tract infection [Recovering/Resolving]

NARRATIVE: CASE EVENT DATE: 20190606
